FAERS Safety Report 25471955 (Version 1)
Quarter: 2025Q2

REPORT INFORMATION
  Report Type: Spontaneous
  Country: US (occurrence: US)
  Receive Date: 20250624
  Receipt Date: 20250624
  Transmission Date: 20250717
  Serious: No
  Sender: ABBVIE
  Company Number: US-ABBVIE-6336026

PATIENT
  Age: 12 Year
  Sex: Female

DRUGS (1)
  1. RINVOQ [Suspect]
     Active Substance: UPADACITINIB
     Indication: Juvenile idiopathic arthritis
     Route: 048
     Dates: start: 202502

REACTIONS (2)
  - Product use in unapproved indication [Not Recovered/Not Resolved]
  - Angioedema [Unknown]

NARRATIVE: CASE EVENT DATE: 20250601
